FAERS Safety Report 8362713-9 (Version None)
Quarter: 2012Q2

REPORT INFORMATION
  Report Type: 
  Country: None (occurrence: None)
  Receive Date: 20120516
  Receipt Date: 20120516
  Transmission Date: 20120825
  Serious: Yes (Hospitalization, Other)
  Sender: FDA-Public Use
  Company Number: HR-ABBOTT-12P-216-0926847-00

PATIENT
  Sex: Male
  Weight: 80 kg

DRUGS (1)
  1. TRICOR [Suspect]
     Indication: HYPERTRIGLYCERIDAEMIA
     Route: 048
     Dates: start: 20111115, end: 20120417

REACTIONS (16)
  - BODY TEMPERATURE DECREASED [None]
  - ASTHENIA [None]
  - LYMPHOMA [None]
  - RETROPERITONEAL LYMPHADENOPATHY [None]
  - HEPATIC STEATOSIS [None]
  - INGUINAL HERNIA [None]
  - ARTERIOSCLEROSIS [None]
  - BLOOD CREATININE INCREASED [None]
  - SPLENIC LESION [None]
  - BODY TEMPERATURE INCREASED [None]
  - ANAEMIA [None]
  - SPLENOMEGALY [None]
  - HEPATIC LESION [None]
  - RENAL CYST [None]
  - BENIGN PROSTATIC HYPERPLASIA [None]
  - LYMPHADENOPATHY [None]
